FAERS Safety Report 10206039 (Version 1)
Quarter: 2014Q2

REPORT INFORMATION
  Report Type: Spontaneous
  Country: US (occurrence: None)
  Receive Date: 20140527
  Receipt Date: 20140527
  Transmission Date: 20141212
  Serious: Yes (Life-Threatening)
  Sender: FDA-Public Use
  Company Number: None

PATIENT
  Age: 51 Year
  Sex: Male
  Weight: 81.65 kg

DRUGS (1)
  1. SULFAMETHOXAZOLE TMP DS 800 160MG AMNEAL [Suspect]
     Indication: EPIDIDYMITIS
     Dosage: 1 PILL TWICE DAILY, TWICE DAILY, TAKEN BY MOUTH
     Route: 048
     Dates: start: 20140319, end: 20140320

REACTIONS (7)
  - Paraesthesia [None]
  - Paraesthesia [None]
  - Pruritus [None]
  - Rash macular [None]
  - Urticaria [None]
  - Aphthous stomatitis [None]
  - Hypoaesthesia oral [None]
